FAERS Safety Report 5312307-4 (Version None)
Quarter: 2007Q2

REPORT INFORMATION
  Report Type: 
  Country: None (occurrence: None)
  Receive Date: 20070430
  Receipt Date: 20061005
  Transmission Date: 20071010
  Serious: No
  Sender: FDA-Public Use
  Company Number: 2006UW19433

PATIENT
  Age: 88 Year
  Sex: Female
  Weight: 73.5 kg

DRUGS (1)
  1. NEXIUM [Suspect]
     Route: 048

REACTIONS (6)
  - ABDOMINAL PAIN UPPER [None]
  - APATHY [None]
  - DEPRESSION [None]
  - EAR DISCOMFORT [None]
  - HEADACHE [None]
  - NERVOUSNESS [None]
